FAERS Safety Report 18622774 (Version 3)
Quarter: 2021Q1

REPORT INFORMATION
  Report Type: Spontaneous
  Country: JP (occurrence: JP)
  Receive Date: 20201216
  Receipt Date: 20210323
  Transmission Date: 20210419
  Serious: Yes (Hospitalization, Other)
  Sender: FDA-Public Use
  Company Number: JP-PFIZER INC-2020494704

PATIENT
  Age: 76 Year
  Sex: Female
  Weight: 42 kg

DRUGS (6)
  1. LIXIANA OD [Concomitant]
     Active Substance: EDOXABAN TOSYLATE
     Indication: ATRIAL FIBRILLATION
     Dosage: 30 MG, 1X/DAY (IN THE MORNING)
     Route: 048
     Dates: start: 20190930
  2. SAMSCA [Concomitant]
     Active Substance: TOLVAPTAN
     Indication: CARDIAC FAILURE
     Dosage: 3.75 MG, 1X/DAY (IN THE MORNING)
     Route: 048
     Dates: start: 20190527
  3. VYNDAQEL [Suspect]
     Active Substance: TAFAMIDIS MEGLUMINE
     Indication: CARDIAC AMYLOIDOSIS
     Dosage: 80 MG, 1X/DAY (IN THE MORNING)
     Route: 048
     Dates: start: 20200212
  4. OLMESARTAN [Concomitant]
     Active Substance: OLMESARTAN
     Indication: CARDIAC FAILURE
     Dosage: 40 MG, 1X/DAY (IN THE MORNING)
     Route: 048
     Dates: start: 20190309
  5. ROSUVASTATIN NIPRO [Concomitant]
     Indication: DYSLIPIDAEMIA
     Dosage: 2.5 MG, 1X/DAY (IN THE MORNING)
     Route: 048
     Dates: start: 20190309
  6. AZOSEMIDE [Concomitant]
     Active Substance: AZOSEMIDE
     Indication: CARDIAC FAILURE
     Dosage: 15 MG, 1X/DAY (IN THE MORNING)
     Route: 048
     Dates: start: 20190309

REACTIONS (1)
  - Cardiac failure [Recovered/Resolved]

NARRATIVE: CASE EVENT DATE: 20200412
